FAERS Safety Report 9501152 (Version 1)
Quarter: 2013Q3

REPORT INFORMATION
  Report Type: Spontaneous
  Country: NL (occurrence: NL)
  Receive Date: 20130905
  Receipt Date: 20130905
  Transmission Date: 20140515
  Serious: Yes (Other)
  Sender: FDA-Public Use
  Company Number: NL-AMGEN-NLDSP2013061858

PATIENT
  Age: 50 Year
  Sex: Female

DRUGS (3)
  1. NEULASTA [Suspect]
     Indication: PRODUCT USED FOR UNKNOWN INDICATION
     Dosage: 6 MG, 24 HRS AFTER CHEMOTHERAPY
     Route: 058
     Dates: start: 20130830
  2. CHEMOTHERAPEUTICS [Concomitant]
     Indication: NEOPLASM MALIGNANT
     Dosage: UNK
  3. DEXAMETHASON                       /00016001/ [Concomitant]
     Dosage: UNK

REACTIONS (4)
  - Oedema mucosal [Unknown]
  - Swollen tongue [Unknown]
  - Headache [Unknown]
  - Sense of oppression [Unknown]
